FAERS Safety Report 7241314-X (Version None)
Quarter: 2011Q1

REPORT INFORMATION
  Report Type: 
  Country: None (occurrence: None)
  Receive Date: 20110124
  Receipt Date: 20110114
  Transmission Date: 20110831
  Serious: Yes (Hospitalization)
  Sender: FDA-Public Use
  Company Number: FR-ROCHE-752291

PATIENT
  Sex: Female

DRUGS (2)
  1. HERCEPTIN [Suspect]
     Indication: BREAST CANCER
     Dosage: FORM: INFUSION
     Route: 042
     Dates: start: 20101210, end: 20101210
  2. HERCEPTIN [Suspect]
     Route: 042
     Dates: start: 20101231

REACTIONS (4)
  - VOMITING [None]
  - MALAISE [None]
  - HYPERTENSION [None]
  - FALL [None]
